FAERS Safety Report 13737307 (Version 1)
Quarter: 2017Q3

REPORT INFORMATION
  Report Type: Spontaneous
  Country: US (occurrence: US)
  Receive Date: 20170710
  Receipt Date: 20170710
  Transmission Date: 20171127
  Serious: Yes (Other)
  Sender: FDA-Public Use
  Company Number: US-NOVOPROD-552931

PATIENT
  Age: 50 Year
  Sex: Male
  Weight: 86.62 kg

DRUGS (5)
  1. TRESIBA FLEXTOUCH U200 [Suspect]
     Active Substance: INSULIN DEGLUDEC
     Indication: TYPE 2 DIABETES MELLITUS
     Dosage: 30 U, QD
     Route: 058
     Dates: start: 201703, end: 201703
  2. METFORMIN [Concomitant]
     Active Substance: METFORMIN HYDROCHLORIDE
     Indication: TYPE 2 DIABETES MELLITUS
     Dosage: UNK
     Route: 048
  3. TRESIBA FLEXTOUCH U200 [Suspect]
     Active Substance: INSULIN DEGLUDEC
     Dosage: 155 U, QD
     Route: 058
     Dates: start: 201608, end: 201703
  4. TRESIBA FLEXTOUCH U200 [Suspect]
     Active Substance: INSULIN DEGLUDEC
     Dosage: 155 U, QD
     Route: 058
     Dates: start: 2017
  5. NOVOLOG [Concomitant]
     Active Substance: INSULIN ASPART
     Indication: TYPE 2 DIABETES MELLITUS
     Dosage: UNK
     Route: 058

REACTIONS (2)
  - Colostomy [Unknown]
  - Ileostomy [Unknown]

NARRATIVE: CASE EVENT DATE: 201703
